FAERS Safety Report 8066526-7 (Version None)
Quarter: 2012Q1

REPORT INFORMATION
  Report Type: 
  Country: None (occurrence: None)
  Receive Date: 20120124
  Receipt Date: 20120109
  Transmission Date: 20120608
  Serious: Yes (Other)
  Sender: FDA-Public Use
  Company Number: PHEH2011US009676

PATIENT
  Sex: Male
  Weight: 73 kg

DRUGS (14)
  1. ACETAMINOPHEN [Concomitant]
     Dosage: 50 MG, UNK
  2. MYCELEX [Concomitant]
     Dosage: UNK UKN, UNK
  3. DAPSONE [Concomitant]
     Dosage: UNK
     Route: 048
     Dates: start: 20110805
  4. VALCYTE [Concomitant]
     Dosage: 450 MG, UNK
     Route: 048
     Dates: start: 20110805
  5. FUROSEMIDE [Concomitant]
     Dosage: UNK UKN, UNK
  6. SIMVASTATIN [Concomitant]
     Dosage: 20 MG, DAILY
     Route: 048
     Dates: start: 20101116
  7. MACROBID [Concomitant]
     Dosage: UNK UKN, UNK
  8. HYDROCHLOROTHIAZIDE [Concomitant]
     Dosage: UNK UKN, UNK
  9. CYCLOBENZAPRINE [Concomitant]
     Dosage: UNK UKN, UNK
  10. FLOMAX [Concomitant]
     Dosage: 0.4 MG, BID
  11. PROGRAF [Concomitant]
     Dosage: UNK UKN, UNK
  12. ZORTRESS [Suspect]
     Indication: RENAL TRANSPLANT
     Dosage: 0.75 MG, BID
     Route: 048
     Dates: start: 20110806
  13. ZORTRESS [Suspect]
     Dosage: 175 MEQ DAILY
     Route: 048
  14. EPOGEN [Concomitant]
     Dosage: UNK UKN, UNK

REACTIONS (12)
  - DIZZINESS POSTURAL [None]
  - LYMPHOCYTE COUNT DECREASED [None]
  - DYSPNOEA [None]
  - ANAEMIA [None]
  - HAEMOLYSIS [None]
  - URETERIC STENOSIS [None]
  - VERTIGO POSITIONAL [None]
  - FATIGUE [None]
  - DYSURIA [None]
  - HYPOACUSIS [None]
  - WEIGHT DECREASED [None]
  - OEDEMA [None]
